FAERS Safety Report 6317615-6 (Version None)
Quarter: 2009Q3

REPORT INFORMATION
  Report Type: 
  Country: None (occurrence: None)
  Receive Date: 20090821
  Receipt Date: 20090819
  Transmission Date: 20100115
  Serious: Yes (Other)
  Sender: FDA-Public Use
  Company Number: SE-BRISTOL-MYERS SQUIBB COMPANY-14338750

PATIENT
  Sex: Female

DRUGS (1)
  1. APROVEL TABS 150 MG [Suspect]
     Dosage: DRUG IS DISCONTUINED ONE AFTER TREATMENT START.75MG 05MAR08-18APR08
     Route: 048
     Dates: start: 20080418, end: 20080624

REACTIONS (1)
  - RETINAL HAEMORRHAGE [None]
